FAERS Safety Report 15977151 (Version 4)
Quarter: 2019Q2

REPORT INFORMATION
  Report Type: Report from Study
  Country: ZA (occurrence: ZA)
  Receive Date: 20190218
  Receipt Date: 20190523
  Transmission Date: 20190711
  Serious: Yes (Hospitalization, Other)
  Sender: FDA-Public Use
  Company Number: ZA-SA-2019SA009577

PATIENT
  Age: 54 Year
  Sex: Female
  Weight: 113 kg

DRUGS (9)
  1. TRIVENZ [Concomitant]
     Dosage: 1 MG, QD
     Dates: start: 20181218
  2. ZYTOMIL [Concomitant]
     Active Substance: ESCITALOPRAM OXALATE
     Dosage: 10 MG, QD
     Dates: start: 20181101
  3. INSULIN GLARGINE [Suspect]
     Active Substance: INSULIN GLARGINE
     Dosage: 48 U, HS
     Route: 058
     Dates: start: 20121219, end: 201904
  4. DIAGLUCIDE [Concomitant]
     Active Substance: GLICLAZIDE
     Dosage: 60 MG, BB (BEFROE BREAKFAST)
     Route: 048
     Dates: start: 2013, end: 201904
  5. VALSARTAN UNICORN [Concomitant]
     Dosage: 160 MG, QD
     Dates: start: 20181218
  6. ADCO-SIMVASTATIN [Concomitant]
     Active Substance: SIMVASTATIN
     Dosage: 20 MG, QD
     Dates: start: 20181218
  7. GLUCOPHAGE [Concomitant]
     Active Substance: METFORMIN HYDROCHLORIDE
     Dosage: 1000 MG, AS (AFTER SUPPER)
     Dates: start: 20181218
  8. INSULIN GLARGINE [Suspect]
     Active Substance: INSULIN GLARGINE
     Dosage: 32 U, UNK
     Dates: start: 201904
  9. DISPRIN CARDIOCARE [Concomitant]
     Active Substance: ASPIRIN
     Dosage: 100 MG, QD
     Dates: start: 20181218

REACTIONS (11)
  - Confusional state [Unknown]
  - Hypoglycaemia [Recovered/Resolved]
  - Constipation [Unknown]
  - Hypoglycaemia [Recovered/Resolved]
  - Hypoaesthesia [Recovered/Resolved]
  - Dry mouth [Recovered/Resolved]
  - Glycosylated haemoglobin increased [Unknown]
  - Loss of consciousness [Unknown]
  - Increased appetite [Unknown]
  - Weight decreased [Unknown]
  - Blood glucose abnormal [Unknown]

NARRATIVE: CASE EVENT DATE: 201812
